FAERS Safety Report 10261867 (Version 2)
Quarter: 2014Q3

REPORT INFORMATION
  Report Type: Spontaneous
  Country: JP (occurrence: JP)
  Receive Date: 20140626
  Receipt Date: 20140812
  Transmission Date: 20150326
  Serious: Yes (Hospitalization)
  Sender: FDA-Public Use
  Company Number: PHHY2014JP077121

PATIENT
  Age: 78 Year
  Sex: Female

DRUGS (10)
  1. CEFAZOLIN [Suspect]
     Active Substance: CEFAZOLIN
     Indication: ADENOIDITIS
     Dosage: 4 G PER DAY
  2. NIFEDIPINE. [Concomitant]
     Active Substance: NIFEDIPINE
     Dosage: 40 MG PER DAY
  3. ATORVASTATIN [Concomitant]
     Active Substance: ATORVASTATIN
     Dosage: 10 MG PER DAY
  4. AMLODIPINE [Concomitant]
     Active Substance: AMLODIPINE BESYLATE
     Dosage: 10 MG PER DAY
  5. NICORANDIL [Concomitant]
     Active Substance: NICORANDIL
     Dosage: 15 MG PER DAY
  6. ASPIRIN. [Concomitant]
     Active Substance: ASPIRIN
     Dosage: 100 MG DAILY
  7. OLMESARTAN [Concomitant]
     Active Substance: OLMESARTAN
     Dosage: 40 MG PER DAY
  8. WARFARIN [Suspect]
     Active Substance: WARFARIN
     Indication: ATRIAL FIBRILLATION
     Dosage: 1.5 MG PER DAY
  9. VALACYCLOVIR [Concomitant]
     Active Substance: VALACYCLOVIR HYDROCHLORIDE
     Indication: ADENOIDITIS
     Dosage: 1000 MG PER DAY
  10. HYDROCORTISONE. [Concomitant]
     Active Substance: HYDROCORTISONE
     Indication: ADENOIDITIS
     Dosage: 100 MG PER DAY

REACTIONS (6)
  - Lip haemorrhage [Recovered/Resolved]
  - Coagulopathy [Recovered/Resolved]
  - Anaemia [Recovered/Resolved]
  - Leukocytosis [Recovered/Resolved]
  - Renal failure [Recovered/Resolved]
  - Vitamin K deficiency [Recovered/Resolved]
